FAERS Safety Report 5285750-X (Version None)
Quarter: 2007Q1

REPORT INFORMATION
  Report Type: 
  Country: None (occurrence: None)
  Receive Date: 20070128
  Receipt Date: 20061002
  Transmission Date: 20070707
  Serious: Yes (Hospitalization)
  Sender: FDA-Public Use
  Company Number: POMP-10821

PATIENT
  Age: 30 Year
  Sex: Female

DRUGS (7)
  1. MYOZYME [Suspect]
     Indication: GLYCOGEN STORAGE DISEASE TYPE II
  2. BENADRYL [Concomitant]
  3. IBUPROFEN [Concomitant]
  4. PREDNISONE TAB [Concomitant]
  5. BENICAR [Concomitant]
  6. CALCIUM [Concomitant]
  7. MULTI-VITAMIN [Concomitant]

REACTIONS (1)
  - SINUS TACHYCARDIA [None]
